FAERS Safety Report 6271540-8 (Version None)
Quarter: 2009Q3

REPORT INFORMATION
  Report Type: 
  Country: None (occurrence: None)
  Receive Date: 20090715
  Receipt Date: 20090715
  Transmission Date: 20100115
  Serious: Yes (Hospitalization)
  Sender: FDA-Public Use
  Company Number: None

PATIENT
  Age: 65 Year
  Sex: Male

DRUGS (1)
  1. METHADONE HCL [Suspect]
     Indication: PAIN
     Dosage: 15 MG EVERY DAY PO
     Route: 048
     Dates: start: 20070314

REACTIONS (3)
  - CONFUSIONAL STATE [None]
  - MENTAL STATUS CHANGES [None]
  - SEDATION [None]
